FAERS Safety Report 4525516-9 (Version None)
Quarter: 2005Q1

REPORT INFORMATION
  Report Type: 
  Country: None (occurrence: None)
  Receive Date: 20041109
  Receipt Date: 20040914
  Transmission Date: 20050727
  Serious: Yes (Hospitalization)
  Sender: FDA-Public Use
  Company Number: US-JNJFOC-20040807396

PATIENT
  Age: 61 Year
  Sex: Female

DRUGS (18)
  1. ELMIRON [Suspect]
     Indication: CYSTITIS INTERSTITIAL
     Dosage: ONE 200 MG DOSE
     Dates: start: 20040401, end: 20040401
  2. ALBUTEROL [Concomitant]
  3. SEROQUEL [Concomitant]
  4. KLONOPIN [Concomitant]
  5. PREVACID [Concomitant]
  6. MULTIVITAMIN [Concomitant]
  7. DOCUSATE (DOCUSATE) [Concomitant]
  8. CALCIUM (CALCIUM) [Concomitant]
  9. SINGULAIR [Concomitant]
  10. ATARAX [Concomitant]
  11. DEMEROL [Concomitant]
  12. FLEXERIL [Concomitant]
  13. ATROVENT [Concomitant]
  14. PHENERGAN [Concomitant]
  15. MIACALCIN [Concomitant]
  16. OXYCODONE (OXYCODONE) [Concomitant]
  17. URICET (POTASSIUM CITRATE) [Concomitant]
  18. EFFEXOR XR [Concomitant]

REACTIONS (2)
  - NAUSEA [None]
  - VOMITING [None]
